FAERS Safety Report 14057203 (Version 3)
Quarter: 2017Q4

REPORT INFORMATION
  Report Type: Spontaneous
  Country: TR (occurrence: TR)
  Receive Date: 20171006
  Receipt Date: 20171129
  Transmission Date: 20180321
  Serious: Yes (Death, Hospitalization, Other)
  Sender: FDA-Public Use
  Company Number: TR-TAKEDA-2017TUS020544

PATIENT
  Age: 58 Year
  Sex: Female

DRUGS (2)
  1. BRINTELLIX [Suspect]
     Active Substance: VORTIOXETINE HYDROBROMIDE
     Indication: DEPRESSION
     Dosage: 10 MG, UNK
     Route: 065
     Dates: start: 201705, end: 201705
  2. DULOXX [Suspect]
     Active Substance: DULOXETINE HYDROCHLORIDE
     Indication: DEPRESSION
     Dosage: 30 MG, UNK
     Route: 065
     Dates: start: 201705, end: 201705

REACTIONS (5)
  - Death [Fatal]
  - Muscular weakness [Recovered/Resolved]
  - Epilepsy [Not Recovered/Not Resolved]
  - Memory impairment [Unknown]
  - Speech disorder [Unknown]

NARRATIVE: CASE EVENT DATE: 20171013
